FAERS Safety Report 14871711 (Version 2)
Quarter: 2018Q3

REPORT INFORMATION
  Report Type: Report from Study
  Country: US (occurrence: US)
  Receive Date: 20180509
  Receipt Date: 20180823
  Transmission Date: 20181010
  Serious: Yes (Hospitalization)
  Sender: FDA-Public Use
  Company Number: US-ACTELION-A-US2018-167339

PATIENT
  Age: 64 Year
  Sex: Male

DRUGS (1)
  1. OPSUMIT [Suspect]
     Active Substance: MACITENTAN
     Indication: PULMONARY HYPERTENSION
     Dosage: UNK
     Route: 048
     Dates: start: 20171119, end: 20180327

REACTIONS (12)
  - Blood bilirubin increased [Recovered/Resolved]
  - Atrial fibrillation [Recovering/Resolving]
  - Gastrointestinal disorder [Recovered/Resolved]
  - Chest pain [Recovered/Resolved]
  - Right ventricular systolic pressure increased [Unknown]
  - Nausea [Recovered/Resolved]
  - Influenza like illness [Unknown]
  - Abdominal pain [Recovered/Resolved]
  - Hepatic enzyme increased [Recovered/Resolved]
  - Ejection fraction decreased [Unknown]
  - Ileus [Recovered/Resolved]
  - Chest discomfort [Recovered/Resolved]

NARRATIVE: CASE EVENT DATE: 20180130
